FAERS Safety Report 18985884 (Version 1)
Quarter: 2021Q1

REPORT INFORMATION
  Report Type: Spontaneous
  Country: ZA (occurrence: ZA)
  Receive Date: 20210309
  Receipt Date: 20210309
  Transmission Date: 20210420
  Serious: Yes (Death, Other)
  Sender: FDA-Public Use
  Company Number: ZA-LUPIN PHARMACEUTICALS INC.-2021-02673

PATIENT
  Age: 76 Year
  Sex: Male

DRUGS (10)
  1. ZOXADON [Suspect]
     Active Substance: RISPERIDONE
     Indication: DEPRESSION
     Dosage: 0.5 MILLIGRAM
     Route: 048
     Dates: end: 202101
  2. PEARINDA [Suspect]
     Active Substance: PERINDOPRIL ERBUMINE
     Indication: HYPERTENSION
     Dosage: 8 MILLIGRAM
     Route: 048
     Dates: end: 202101
  3. ZYTOMIL [Suspect]
     Active Substance: ESCITALOPRAM OXALATE
     Indication: DEPRESSION
     Dosage: 20 MILLIGRAM
     Route: 048
     Dates: end: 202101
  4. DIAGLUCIDE [Suspect]
     Active Substance: GLICLAZIDE
     Indication: DIABETES MELLITUS
     Dosage: 60 MILLIGRAM
     Route: 048
     Dates: end: 202101
  5. DOPAQUEL [Suspect]
     Active Substance: QUETIAPINE
     Indication: DEPRESSION
     Dosage: 25 MILLIGRAM
     Route: 048
     Dates: end: 202101
  6. DEGRANOL [Suspect]
     Active Substance: CARBAMAZEPINE
     Indication: EPILEPSY
     Dosage: 200 MILLIGRAM
     Route: 048
     Dates: end: 202101
  7. CIPLA?SIMVASTATIN [Suspect]
     Active Substance: SIMVASTATIN
     Indication: BLOOD CHOLESTEROL ABNORMAL
     Dosage: 20 MILLIGRAM
     Route: 048
     Dates: end: 202101
  8. MEMOR [Suspect]
     Active Substance: MEMANTINE HYDROCHLORIDE
     Indication: DEMENTIA
     Dosage: 10 MILLIGRAM
     Route: 048
     Dates: end: 202101
  9. CIPLAVASC [Suspect]
     Active Substance: AMLODIPINE BESYLATE
     Indication: CARDIAC DISORDER
     Dosage: 10 MILLIGRAM
     Route: 048
     Dates: end: 202101
  10. DIAPHAGE [Suspect]
     Active Substance: METFORMIN HYDROCHLORIDE
     Indication: DIABETES MELLITUS
     Dosage: 1000 MILLIGRAM
     Route: 048
     Dates: end: 202101

REACTIONS (1)
  - Myocardial infarction [Fatal]

NARRATIVE: CASE EVENT DATE: 20210118
